FAERS Safety Report 8171173-2 (Version None)
Quarter: 2012Q1

REPORT INFORMATION
  Report Type: 
  Country: None (occurrence: None)
  Receive Date: 20120228
  Receipt Date: 20111130
  Transmission Date: 20120608
  Serious: No
  Sender: FDA-Public Use
  Company Number: US-BRISTOL-MYERS SQUIBB COMPANY-16259764

PATIENT
  Age: 52 Year
  Sex: Male

DRUGS (6)
  1. LOPRESSOR [Concomitant]
  2. ONGLYZA [Suspect]
     Indication: DIABETES MELLITUS
     Route: 048
  3. LIPITOR [Concomitant]
  4. METFORMIN HCL [Concomitant]
  5. VITAMIN D [Concomitant]
  6. LEVOXYL [Concomitant]

REACTIONS (1)
  - DEPRESSED MOOD [None]
